FAERS Safety Report 4379426-0 (Version None)
Quarter: 2004Q2

REPORT INFORMATION
  Report Type: 
  Country: None (occurrence: None)
  Receive Date: 20040614
  Receipt Date: 20040602
  Transmission Date: 20050107
  Serious: Yes (Hospitalization)
  Sender: FDA-Public Use
  Company Number: MESA00204001581

PATIENT
  Sex: Male

DRUGS (2)
  1. ROWASA [Suspect]
     Indication: ILL-DEFINED DISORDER
     Dosage: DAILY RC
  2. ASACOLASACOL (MESALAZINE) [Suspect]
     Indication: ILL-DEFINED DISORDER
     Dosage: DAILY

REACTIONS (1)
  - INTERNATIONAL NORMALISED RATIO INCREASED [None]
